FAERS Safety Report 6924070-1 (Version None)
Quarter: 2010Q3

REPORT INFORMATION
  Report Type: 
  Country: None (occurrence: None)
  Receive Date: 20100813
  Receipt Date: 20100802
  Transmission Date: 20110219
  Serious: Yes (Death)
  Sender: FDA-Public Use
  Company Number: HQWYE152706MAR06

PATIENT
  Sex: Male
  Weight: 74.91 kg

DRUGS (7)
  1. EFFEXOR XR [Suspect]
  2. FENTANYL CITRATE [Concomitant]
     Route: 062
  3. INSULIN [Concomitant]
     Indication: DIABETES MELLITUS
  4. ACTONEL [Concomitant]
  5. AMBIEN [Concomitant]
     Dosage: 5 MG, FREQUENCY UNKNOWN
  6. NORCO [Concomitant]
  7. MOTRIN [Concomitant]

REACTIONS (2)
  - COMPLETED SUICIDE [None]
  - GUN SHOT WOUND [None]
